FAERS Safety Report 14566628 (Version 2)
Quarter: 2018Q1

REPORT INFORMATION
  Report Type: Report from Study
  Country: NL (occurrence: NL)
  Receive Date: 20180223
  Receipt Date: 20180307
  Transmission Date: 20180509
  Serious: Yes (Other)
  Sender: FDA-Public Use
  Company Number: NL-BEH-2018088141

PATIENT
  Age: 55 Year
  Sex: Female

DRUGS (1)
  1. HIZENTRA [Suspect]
     Active Substance: HUMAN IMMUNOGLOBULIN G
     Indication: IMMUNODEFICIENCY COMMON VARIABLE
     Dosage: 4 G (20ML), QW
     Route: 065
     Dates: start: 20180119, end: 20180216

REACTIONS (6)
  - Nausea [Unknown]
  - Adverse drug reaction [Unknown]
  - Swollen tongue [Unknown]
  - Feeling abnormal [Unknown]
  - Dizziness [Unknown]
  - Pharyngeal oedema [Unknown]

NARRATIVE: CASE EVENT DATE: 20180216
